FAERS Safety Report 5959543-1 (Version None)
Quarter: 2008Q4

REPORT INFORMATION
  Report Type: 
  Country: None (occurrence: None)
  Receive Date: 20081118
  Receipt Date: 20081103
  Transmission Date: 20090506
  Serious: Yes (Other)
  Sender: FDA-Public Use
  Company Number: DSA_32504_2008

PATIENT
  Sex: Male

DRUGS (5)
  1. LORAZEPAM [Suspect]
     Indication: SLEEP DISORDER
     Dosage: (1 MG QD SUBLINGUAL), (0.5 MG QD SUBLINGUAL)
     Route: 060
     Dates: start: 20080601, end: 20080901
  2. LORAZEPAM [Suspect]
     Indication: SLEEP DISORDER
     Dosage: (1 MG QD SUBLINGUAL), (0.5 MG QD SUBLINGUAL)
     Route: 060
     Dates: start: 20080901
  3. REMERON [Concomitant]
  4. MELATONIN [Concomitant]
  5. VITAMIN PREPARATION COMPOUND [Concomitant]

REACTIONS (4)
  - CONDITION AGGRAVATED [None]
  - GAIT DISTURBANCE [None]
  - MUSCULOSKELETAL STIFFNESS [None]
  - PAIN IN EXTREMITY [None]
